FAERS Safety Report 9700646 (Version 2)
Quarter: 2013Q4

REPORT INFORMATION
  Report Type: Spontaneous
  Country: JP (occurrence: JP)
  Receive Date: 20131121
  Receipt Date: 20131121
  Transmission Date: 20140711
  Serious: Yes (Hospitalization, Other)
  Sender: FDA-Public Use
  Company Number: PHHY2011JP84363

PATIENT
  Age: 52 Year
  Sex: Female

DRUGS (44)
  1. CLOZARIL [Suspect]
     Indication: SCHIZOPHRENIA, PARANOID TYPE
     Dosage: 12.5 MG, UNK
     Route: 048
     Dates: start: 20110802, end: 20110802
  2. CLOZARIL [Suspect]
     Dosage: 25 MG, UNK
     Route: 048
     Dates: start: 20110803, end: 20110803
  3. CLOZARIL [Suspect]
     Dosage: 50 MG, UNK
     Route: 048
     Dates: start: 20110804, end: 20110808
  4. CLOZARIL [Suspect]
     Dosage: 100 MG, UNK
     Route: 048
     Dates: start: 20110809, end: 20110810
  5. CLOZARIL [Suspect]
     Dosage: 125 MG, UNK
     Route: 048
     Dates: start: 20110811, end: 20110815
  6. CLOZARIL [Suspect]
     Dosage: 150 MG, UNK
     Route: 048
     Dates: start: 20110816, end: 20110817
  7. CLOZARIL [Suspect]
     Dosage: 175 MG, UNK
     Route: 048
     Dates: start: 20110818, end: 20110820
  8. CLOZARIL [Suspect]
     Dosage: 200 MG, UNK
     Route: 048
     Dates: start: 20110821, end: 20110824
  9. CLOZARIL [Suspect]
     Dosage: 300 MG, UNK
     Route: 048
     Dates: start: 20110825, end: 20110828
  10. CLOZARIL [Suspect]
     Dosage: 400 MG, UNK
     Route: 048
     Dates: start: 20110829, end: 20110901
  11. CLOZARIL [Suspect]
     Dosage: 500 MG, UNK
     Route: 048
     Dates: start: 20110902, end: 20110905
  12. CLOZARIL [Suspect]
     Dosage: 600 MG, UNK
     Route: 048
     Dates: start: 20110906, end: 20110926
  13. CLOZARIL [Suspect]
     Dosage: 500 MG, UNK
     Route: 048
     Dates: start: 20110927, end: 20111024
  14. CLOZARIL [Suspect]
     Dosage: 400 MG, UNK
     Route: 048
     Dates: start: 20111025
  15. CHLORPROMAZINE HYDROCHLORIDE [Concomitant]
     Dosage: 25 MG, UNK
     Route: 048
     Dates: start: 20110802, end: 20110808
  16. LEVOMEPROMAZINE MALEATE [Concomitant]
     Dosage: 50 MG, UNK
     Route: 048
     Dates: start: 20110802
  17. LEVOMEPROMAZINE MALEATE [Concomitant]
     Dosage: 25 MG, UNK
     Route: 048
     Dates: end: 20110817
  18. HALOPERIDOL [Concomitant]
     Route: 048
  19. ZOTEPINE [Concomitant]
     Dosage: UNK UKN, UNK
  20. RISPERIDONE [Concomitant]
     Dosage: 6 MG, UNK
     Route: 048
     Dates: start: 20110802, end: 20110822
  21. PEROSPIRONE [Concomitant]
     Dosage: 48 MG, UNK
     Route: 048
     Dates: start: 20110802
  22. PEROSPIRONE [Concomitant]
     Dosage: 24 MG, UNK
     Route: 048
     Dates: end: 20110829
  23. SHAKUYAKUKANZOUTOU [Concomitant]
     Dosage: 5000 MG, UNK
     Route: 048
     Dates: start: 20110802, end: 20110919
  24. DAIO-KANZO-TO [Concomitant]
     Dosage: 7500 MG, UNK
     Route: 048
     Dates: start: 20110802, end: 20110919
  25. SENNA [Concomitant]
     Dosage: 320 MG, UNK
     Route: 048
     Dates: start: 20110802
  26. SENNA [Concomitant]
     Dosage: 240 MG, UNK
     Route: 048
  27. SENNA [Concomitant]
     Dosage: 160 MG, UNK
     Route: 048
  28. SENNA [Concomitant]
     Dosage: 80 MG, UNK
     Route: 048
     Dates: end: 20111128
  29. SENNOSIDE [Concomitant]
     Dosage: 36 MG, UNK
     Route: 048
     Dates: start: 20110802
  30. SENNOSIDE [Concomitant]
     Dosage: 24 MG, UNK
     Route: 048
  31. SENNOSIDE [Concomitant]
     Dosage: 12 MG, UNK
     Route: 048
  32. MAGNESIUM OXIDE [Concomitant]
     Dosage: 2000 MG, UNK
     Route: 048
     Dates: start: 20110802
  33. MAGNESIUM OXIDE [Concomitant]
     Dosage: 3000 MG, UNK
     Route: 048
  34. MAGNESIUM OXIDE [Concomitant]
     Dosage: 2000 MG, UNK
     Route: 048
     Dates: end: 20110802
  35. PROMETHAZINE HYDROCHLORIDE [Concomitant]
     Dosage: 12.5 MG, UNK
     Route: 048
     Dates: start: 20110802, end: 20110808
  36. PHENOBARBITAL [Concomitant]
     Dosage: 40 MG, UNK
     Route: 048
     Dates: start: 20110802, end: 20110808
  37. PYRIDOXAL PHOSPHATE [Concomitant]
     Dosage: 60 MG, UNK
     Route: 048
     Dates: start: 20110906
  38. NITRAZEPAM [Concomitant]
     Dosage: 5 MG, UNK
     Dates: start: 20110802, end: 20110905
  39. NITRAZEPAM [Concomitant]
     Dosage: 2.5 MG, UNK
     Route: 048
     Dates: start: 20110802, end: 20110905
  40. VALPROATE SODIUM [Concomitant]
     Dosage: 400 MG, UNK
     Route: 048
     Dates: start: 20110908
  41. VALPROATE SODIUM [Concomitant]
     Dosage: 800 MG, UNK
     Route: 048
  42. VALPROATE SODIUM [Concomitant]
     Dosage: 600 MG, UNK
     Route: 048
  43. VALPROATE SODIUM [Concomitant]
     Dosage: 300 MG, UNK
     Route: 048
     Dates: end: 20111003
  44. LITHIUM CARBONATE [Concomitant]
     Dosage: 400 MG, UNK
     Route: 048
     Dates: start: 20111018

REACTIONS (7)
  - Circulatory collapse [Unknown]
  - Epilepsy [Recovered/Resolved]
  - Snoring [Recovered/Resolved]
  - Vomiting [Recovered/Resolved]
  - Loss of consciousness [Recovered/Resolved]
  - Atonic seizures [Recovering/Resolving]
  - Myoclonic epilepsy [Recovering/Resolving]
